FAERS Safety Report 16706412 (Version 1)
Quarter: 2019Q3

REPORT INFORMATION
  Report Type: Spontaneous
  Country: US (occurrence: US)
  Receive Date: 20190628
  Receipt Date: 20190628
  Transmission Date: 20191004
  Serious: Yes (Death, Life-Threatening)
  Sender: FDA-Public Use
  Company Number: None

PATIENT
  Age: 95 Year
  Sex: Female
  Weight: 64 kg

DRUGS (3)
  1. MIRCERA [Suspect]
     Active Substance: METHOXY POLYETHYLENE GLYCOL-EPOETIN BETA
     Indication: NEPHROGENIC ANAEMIA
     Route: 042
     Dates: start: 20190525, end: 20190525
  2. VENOFER [Concomitant]
     Active Substance: IRON SUCROSE
     Dosage: EVERY TREATMENT
     Route: 042
     Dates: start: 20190525, end: 20190525
  3. MIRCERA [Suspect]
     Active Substance: METHOXY POLYETHYLENE GLYCOL-EPOETIN BETA
     Indication: END STAGE RENAL DISEASE
     Route: 042
     Dates: start: 20190525, end: 20190525

REACTIONS (2)
  - Haemodialysis [None]
  - Unresponsive to stimuli [None]

NARRATIVE: CASE EVENT DATE: 20190525
